FAERS Safety Report 5415144-5 (Version None)
Quarter: 2007Q3

REPORT INFORMATION
  Report Type: 
  Country: None (occurrence: None)
  Receive Date: 20070815
  Receipt Date: 20070627
  Transmission Date: 20080115
  Serious: No
  Sender: FDA-Public Use
  Company Number: A0661333A

PATIENT
  Age: 67 Year
  Sex: Male

DRUGS (9)
  1. COREG CR [Suspect]
     Dosage: 40MG PER DAY
     Route: 048
     Dates: start: 20070625
  2. SIMVASTATIN [Concomitant]
  3. WARFARIN SODIUM [Concomitant]
  4. COUMADIN [Concomitant]
  5. POTASSIUM CHLORIDE [Concomitant]
  6. ASPIRIN [Concomitant]
  7. ALTACE [Concomitant]
  8. AMIODARONE HCL [Concomitant]
  9. COREG [Concomitant]
     Dosage: 12.5MG TWICE PER DAY
     Route: 048
     Dates: end: 20070601

REACTIONS (2)
  - ABDOMINAL PAIN [None]
  - DIARRHOEA [None]
